FAERS Safety Report 18287387 (Version 4)
Quarter: 2020Q4

REPORT INFORMATION
  Report Type: Report from Study
  Country: US (occurrence: US)
  Receive Date: 20200921
  Receipt Date: 20201126
  Transmission Date: 20210113
  Serious: No
  Sender: FDA-Public Use
  Company Number: NVSC2020US252714

PATIENT
  Age: 73 Year
  Sex: Female

DRUGS (2)
  1. COSENTYX [Suspect]
     Active Substance: SECUKINUMAB
     Indication: PSORIASIS
     Dosage: 300 MG (FOR FIVE WEEKS AND THEN EVERY 4 WEEKS)
     Route: 058
     Dates: start: 20200907
  2. COSENTYX [Suspect]
     Active Substance: SECUKINUMAB
     Dosage: 300 MG, OTHER, Q WEEK FOR FIVE WEEKS AND THEN Q 4 WEEKS
     Route: 058
     Dates: start: 20200915

REACTIONS (6)
  - Dysphagia [Unknown]
  - Wrong technique in device usage process [Unknown]
  - Incorrect dose administered [Unknown]
  - Breast pain [Unknown]
  - Throat irritation [Unknown]
  - Burn oesophageal [Unknown]

NARRATIVE: CASE EVENT DATE: 20200907
